FAERS Safety Report 15876845 (Version 2)
Quarter: 2019Q1

REPORT INFORMATION
  Report Type: Report from Study
  Country: None (occurrence: CA)
  Receive Date: 20190127
  Receipt Date: 20190217
  Transmission Date: 20190417
  Serious: Yes (Other)
  Sender: FDA-Public Use
  Company Number: CA-ABBVIE-19K-028-2639214-00

PATIENT
  Sex: Female

DRUGS (2)
  1. HUMIRA [Suspect]
     Active Substance: ADALIMUMAB
     Indication: CROHN^S DISEASE
     Route: 058
     Dates: start: 20170815, end: 2018
  2. HUMIRA [Suspect]
     Active Substance: ADALIMUMAB
     Route: 058
     Dates: start: 20190120

REACTIONS (11)
  - Fatigue [Unknown]
  - Pain [Unknown]
  - Unevaluable event [Unknown]
  - Weight decreased [Unknown]
  - Malaise [Unknown]
  - Depression [Unknown]
  - Dysgeusia [Unknown]
  - Pain [Recovered/Resolved]
  - Abdominal adhesions [Unknown]
  - Salpingo-oophorectomy unilateral [Unknown]
  - Asthenia [Unknown]
